FAERS Safety Report 6276524-1 (Version None)
Quarter: 2009Q3

REPORT INFORMATION
  Report Type: 
  Country: None (occurrence: None)
  Receive Date: 20090722
  Receipt Date: 20090708
  Transmission Date: 20100115
  Serious: Yes (Hospitalization)
  Sender: FDA-Public Use
  Company Number: DE-ROCHE-642921

PATIENT
  Age: 57 Year
  Sex: Female

DRUGS (3)
  1. PEG-INTERFERON ALFA 2A (RO 25-8310) [Suspect]
     Indication: HEPATITIS C
     Route: 065
     Dates: start: 20090514
  2. RIBAVIRIN [Suspect]
     Indication: HEPATITIS C
     Route: 065
     Dates: start: 20090514
  3. BLINDED BOCEPREVIR [Suspect]
     Indication: HEPATITIS C
     Dosage: DOSE BLINDED.
     Route: 065
     Dates: start: 20090611

REACTIONS (1)
  - INTERVERTEBRAL DISC PROTRUSION [None]
